FAERS Safety Report 15239379 (Version 1)
Quarter: 2018Q3

REPORT INFORMATION
  Report Type: Spontaneous
  Country: GB (occurrence: GB)
  Receive Date: 20180803
  Receipt Date: 20180803
  Transmission Date: 20181010
  Serious: Yes (Disabling, Other)
  Sender: FDA-Public Use
  Company Number: GB-GLAXOSMITHKLINE-GB2018GSK136103

PATIENT
  Age: 37 Year
  Sex: Female
  Weight: 67.9 kg

DRUGS (1)
  1. NUCALA [Suspect]
     Active Substance: MEPOLIZUMAB
     Indication: ASTHMA
     Dosage: 100 MG, Z
     Route: 058
     Dates: start: 20180516, end: 20180711

REACTIONS (5)
  - Rash [Unknown]
  - Eczema [Unknown]
  - Skin depigmentation [Not Recovered/Not Resolved]
  - Pruritus [Unknown]
  - Vitiligo [Not Recovered/Not Resolved]

NARRATIVE: CASE EVENT DATE: 201805
